FAERS Safety Report 19701654 (Version 1)
Quarter: 2021Q3

REPORT INFORMATION
  Report Type: Spontaneous
  Country: CN (occurrence: CN)
  Receive Date: 20210813
  Receipt Date: 20210813
  Transmission Date: 20211014
  Serious: Yes (Other)
  Sender: FDA-Public Use
  Company Number: CN-PURDUE-USA-2021-0281811

PATIENT
  Age: 76 Year
  Sex: Female
  Weight: 52 kg

DRUGS (2)
  1. OXYCONTIN [Suspect]
     Active Substance: OXYCODONE HYDROCHLORIDE
     Dosage: 20 MG, Q12H
     Route: 048
     Dates: start: 20210711, end: 20210716
  2. OXYCONTIN [Suspect]
     Active Substance: OXYCODONE HYDROCHLORIDE
     Indication: PAIN
     Dosage: 10 MG, Q12H
     Route: 048
     Dates: start: 20210716

REACTIONS (4)
  - Unresponsive to stimuli [Unknown]
  - Asthenia [Unknown]
  - Constipation [Unknown]
  - Somnolence [Unknown]

NARRATIVE: CASE EVENT DATE: 20210713
